APPROVED DRUG PRODUCT: TERAZOSIN HYDROCHLORIDE
Active Ingredient: TERAZOSIN HYDROCHLORIDE
Strength: EQ 2MG BASE
Dosage Form/Route: CAPSULE;ORAL
Application: A219482 | Product #002 | TE Code: AB
Applicant: AJANTA PHARMA LTD
Approved: May 12, 2025 | RLD: No | RS: No | Type: RX